FAERS Safety Report 8781015 (Version 1)
Quarter: 2012Q4

REPORT INFORMATION
  Report Type: 
  Country: US (occurrence: US)
  Receive Date: 20120913
  Receipt Date: 20120913
  Transmission Date: 20130627
  Serious: Yes (Death, Other)
  Sender: FDA-Public Use
  Company Number: US-ROCHE-1113209

PATIENT
  Sex: Female

DRUGS (7)
  1. AVASTIN [Suspect]
     Indication: MALIGNANT RESPIRATORY TRACT NEOPLASM
     Route: 065
     Dates: start: 20051117
  2. AVASTIN [Suspect]
     Route: 065
     Dates: start: 20051205
  3. AVASTIN [Suspect]
     Route: 065
     Dates: start: 20060119
  4. AVASTIN [Suspect]
     Route: 065
     Dates: start: 20060209
  5. TARCEVA [Suspect]
     Indication: PRODUCT USED FOR UNKNOWN INDICATION
     Route: 065
  6. TAXOL [Concomitant]
  7. CARBOPLATIN [Concomitant]

REACTIONS (11)
  - Death [Fatal]
  - Dyspnoea [Unknown]
  - Metastasis [Unknown]
  - Herpes zoster [Unknown]
  - Carcinoembryonic antigen increased [Unknown]
  - Asthenia [Unknown]
  - Lymphadenopathy [Unknown]
  - Constipation [Unknown]
  - Abdominal discomfort [Unknown]
  - Cough [Unknown]
  - Dysphagia [Unknown]
